FAERS Safety Report 25801452 (Version 1)
Quarter: 2025Q3

REPORT INFORMATION
  Report Type: Spontaneous
  Country: US (occurrence: US)
  Receive Date: 20250915
  Receipt Date: 20250915
  Transmission Date: 20251020
  Serious: Yes (Hospitalization, Other)
  Sender: ACCORD
  Company Number: US-Accord-419431

PATIENT
  Age: 72 Year
  Sex: Female

DRUGS (6)
  1. APIXABAN [Interacting]
     Active Substance: APIXABAN
     Indication: Prophylaxis
     Route: 048
     Dates: start: 202104, end: 202104
  2. AMIODARONE [Interacting]
     Active Substance: AMIODARONE
     Indication: Atrial fibrillation
     Route: 048
     Dates: start: 202104
  3. ASPIRIN [Concomitant]
     Active Substance: ASPIRIN
     Indication: Chest pain
  4. NITROGLYCERIN [Concomitant]
     Active Substance: NITROGLYCERIN
     Indication: Chest pain
  5. AMIODARONE [Interacting]
     Active Substance: AMIODARONE
     Indication: Atrial fibrillation
     Dates: start: 202104, end: 202104
  6. APIXABAN [Interacting]
     Active Substance: APIXABAN
     Indication: Anticoagulant therapy
     Route: 048
     Dates: start: 202104, end: 202104

REACTIONS (4)
  - Pericardial haemorrhage [Recovering/Resolving]
  - Drug interaction [Unknown]
  - Electrocardiogram ST segment elevation [Unknown]
  - Pericardial effusion [Unknown]

NARRATIVE: CASE EVENT DATE: 20210401
